FAERS Safety Report 8041262-1 (Version None)
Quarter: 2012Q1

REPORT INFORMATION
  Report Type: 
  Country: None (occurrence: None)
  Receive Date: 20120112
  Receipt Date: 20120111
  Transmission Date: 20120608
  Serious: Yes (Other)
  Sender: FDA-Public Use
  Company Number: US-PFIZER INC-2012008716

PATIENT
  Sex: Male
  Weight: 72.562 kg

DRUGS (2)
  1. ROPINIROLE [Concomitant]
     Indication: DEPRESSION
     Dosage: 1 MG, 1X/DAY
  2. CHANTIX [Suspect]
     Indication: SMOKING CESSATION THERAPY
     Dosage: 0.5 MG, 1X/DAY
     Route: 048
     Dates: start: 20120105

REACTIONS (3)
  - NAUSEA [None]
  - DEPRESSION [None]
  - MOOD SWINGS [None]
